FAERS Safety Report 12094554 (Version 2)
Quarter: 2016Q2

REPORT INFORMATION
  Report Type: Spontaneous
  Country: BR (occurrence: BR)
  Receive Date: 20160219
  Receipt Date: 20160404
  Transmission Date: 20160815
  Serious: Yes (Other)
  Sender: FDA-Public Use
  Company Number: BR-JNJFOC-20160209829

PATIENT
  Sex: Male

DRUGS (3)
  1. REMICADE [Suspect]
     Active Substance: INFLIXIMAB
     Indication: RHEUMATOID ARTHRITIS
     Route: 042
     Dates: start: 2015, end: 2015
  2. REMICADE [Suspect]
     Active Substance: INFLIXIMAB
     Indication: RHEUMATOID ARTHRITIS
     Route: 042
     Dates: start: 2014, end: 2014
  3. REMICADE [Suspect]
     Active Substance: INFLIXIMAB
     Indication: RHEUMATOID ARTHRITIS
     Route: 042
     Dates: start: 2015, end: 2015

REACTIONS (10)
  - Dizziness [Unknown]
  - Chest discomfort [Unknown]
  - Infusion related reaction [Unknown]
  - Malaise [Unknown]
  - Cardiac arrest [Unknown]
  - Infarction [Unknown]
  - Dyspnoea [Unknown]
  - Abdominal pain upper [Unknown]
  - Heart rate increased [Unknown]
  - Blood pressure increased [Unknown]

NARRATIVE: CASE EVENT DATE: 2015
